FAERS Safety Report 20546563 (Version 1)
Quarter: 2022Q1

REPORT INFORMATION
  Report Type: Spontaneous
  Country: ES (occurrence: None)
  Receive Date: 20220303
  Receipt Date: 20220303
  Transmission Date: 20220424
  Serious: Yes (Hospitalization)
  Sender: FDA-Public Use
  Company Number: None

PATIENT
  Age: 49 Year
  Sex: Male

DRUGS (3)
  1. LINEZOLID [Interacting]
     Active Substance: LINEZOLID
     Indication: Urosepsis
     Dosage: 24H?LINEZOLID (1279A)
     Route: 042
     Dates: start: 20210801, end: 20210802
  2. TRAZODONE [Interacting]
     Active Substance: TRAZODONE HYDROCHLORIDE
     Indication: Depression
     Dosage: SP?TRAZODONE (3160A)
     Route: 048
     Dates: start: 20210801, end: 20210806
  3. METHYLPREDNISOLONE [Concomitant]
     Active Substance: METHYLPREDNISOLONE
     Indication: Central cord syndrome
     Dosage: SP?METHYLPREDNISOLONE (888A)
     Route: 042
     Dates: start: 20210801, end: 20210806

REACTIONS (1)
  - Hyponatraemia [Recovered/Resolved]

NARRATIVE: CASE EVENT DATE: 20210802
